FAERS Safety Report 8506522-6 (Version None)
Quarter: 2012Q3

REPORT INFORMATION
  Report Type: 
  Country: None (occurrence: None)
  Receive Date: 20120712
  Receipt Date: 20120405
  Transmission Date: 20120928
  Serious: Yes (Other)
  Sender: FDA-Public Use
  Company Number: US-GLAXOSMITHKLINE-A0972451A

PATIENT
  Age: 80 Year
  Sex: Male
  Weight: 79.5 kg

DRUGS (6)
  1. METOPROLOL TARTRATE [Concomitant]
  2. XANAX [Concomitant]
  3. JALYN [Suspect]
     Route: 048
     Dates: start: 20120322
  4. COUMADIN [Concomitant]
  5. LEVOTHYROXINE SODIUM [Concomitant]
  6. PROPRANOLOL [Concomitant]

REACTIONS (1)
  - CONSTIPATION [None]
